FAERS Safety Report 10735909 (Version 1)
Quarter: 2015Q1

REPORT INFORMATION
  Report Type: Spontaneous
  Country: US (occurrence: US)
  Receive Date: 20150126
  Receipt Date: 20150126
  Transmission Date: 20150721
  Serious: Yes (Other)
  Sender: FDA-Public Use
  Company Number: US-TEVA-535874USA

PATIENT
  Age: 46 Year
  Sex: Male

DRUGS (2)
  1. LIBIDO-MAX (YOHIMBINE) [Interacting]
     Active Substance: DIETARY SUPPLEMENT
     Indication: ERECTILE DYSFUNCTION
     Dosage: DOSE AND FREQUENCY NOT PROVIDED
     Route: 065
  2. CLONIDINE. [Suspect]
     Active Substance: CLONIDINE
     Indication: HYPERTENSION
     Dosage: 0.3MG (FREQUENCY NOT PROVIDED)
     Route: 048

REACTIONS (3)
  - Drug interaction [Recovered/Resolved]
  - Hypertensive crisis [Recovered/Resolved]
  - Inhibitory drug interaction [None]
